FAERS Safety Report 16477297 (Version 1)
Quarter: 2019Q2

REPORT INFORMATION
  Report Type: Spontaneous
  Country: US (occurrence: US)
  Receive Date: 20190626
  Receipt Date: 20190626
  Transmission Date: 20190711
  Serious: Yes (Hospitalization, Other)
  Sender: FDA-Public Use
  Company Number: US-SUN PHARMACEUTICAL INDUSTRIES LTD-2019R1-211398

PATIENT
  Age: 2 Month
  Sex: Male
  Weight: 3.1 kg

DRUGS (2)
  1. DIGOXIN. [Suspect]
     Active Substance: DIGOXIN
     Indication: PRODUCT USED FOR UNKNOWN INDICATION
     Dosage: 0.15 MILLIGRAM, BID
     Route: 048
  2. FUROSEMIDE. [Concomitant]
     Active Substance: FUROSEMIDE
     Indication: PRODUCT USED FOR UNKNOWN INDICATION
     Dosage: UNK
     Route: 065

REACTIONS (6)
  - Blood creatinine abnormal [Unknown]
  - Haemolysis [Unknown]
  - Medication error [Unknown]
  - Sinus rhythm [Unknown]
  - Blood potassium abnormal [Unknown]
  - Cardioactive drug level increased [Recovered/Resolved]
